FAERS Safety Report 11371145 (Version 1)
Quarter: 2015Q3

REPORT INFORMATION
  Report Type: Spontaneous
  Country: US (occurrence: US)
  Receive Date: 20150812
  Receipt Date: 20150812
  Transmission Date: 20151125
  Serious: Yes (Other)
  Sender: FDA-Public Use
  Company Number: US-PFIZER INC-2015260500

PATIENT
  Sex: Female

DRUGS (1)
  1. ATORVASTATIN CALCIUM. [Suspect]
     Active Substance: ATORVASTATIN CALCIUM
     Dosage: UNK UNK, DAILY

REACTIONS (7)
  - Dizziness [Unknown]
  - Abdominal pain [Unknown]
  - Insomnia [Unknown]
  - Confusional state [Unknown]
  - Pancreatitis [Unknown]
  - Headache [Unknown]
  - Gastrointestinal disorder [Unknown]
